FAERS Safety Report 6253870-9 (Version None)
Quarter: 2009Q3

REPORT INFORMATION
  Report Type: 
  Country: None (occurrence: None)
  Receive Date: 20090702
  Receipt Date: 20090624
  Transmission Date: 20100115
  Serious: Yes (Other)
  Sender: FDA-Public Use
  Company Number: ES-CELGENEUS-144-21880-09061979

PATIENT
  Age: 64 Year
  Sex: Female

DRUGS (1)
  1. REVLIMID [Suspect]
     Route: 048
     Dates: start: 20070101

REACTIONS (2)
  - DRUG INEFFECTIVE [None]
  - TRANSFUSION [None]
